FAERS Safety Report 5064863-1 (Version None)
Quarter: 2006Q3

REPORT INFORMATION
  Report Type: 
  Country: None (occurrence: None)
  Receive Date: 20060728
  Receipt Date: 20060123
  Transmission Date: 20061208
  Serious: Yes (Hospitalization)
  Sender: FDA-Public Use
  Company Number: US-NOVOPROD-250869

PATIENT
  Age: 7 Month
  Sex: Male

DRUGS (2)
  1. NORDITROPIN [Suspect]
     Indication: GROWTH HORMONE DEFICIENCY
     Dosage: .2 MG, QD
     Route: 058
     Dates: start: 20050624, end: 20051001
  2. NORDITROPIN [Suspect]
     Dosage: .3 MG, QD
     Dates: start: 20051001

REACTIONS (2)
  - DRUG DISPENSING ERROR [None]
  - HYPOGLYCAEMIC SEIZURE [None]
